FAERS Safety Report 8543798-3 (Version None)
Quarter: 2012Q3

REPORT INFORMATION
  Report Type: 
  Country: None (occurrence: None)
  Receive Date: 20120727
  Receipt Date: 20120724
  Transmission Date: 20120928
  Serious: Yes (Hospitalization)
  Sender: FDA-Public Use
  Company Number: FR-PFIZER INC-2012178185

PATIENT
  Age: 67 Year
  Sex: Male

DRUGS (2)
  1. TAZOBACTAM [Suspect]
     Indication: SEPTIC SHOCK
     Dosage: UNK
     Route: 042
     Dates: start: 20110701, end: 20110729
  2. VANCOMYCIN [Suspect]
     Indication: SEPTIC SHOCK
     Dosage: UNK
     Route: 042
     Dates: start: 20110701, end: 20110729

REACTIONS (1)
  - DERMATITIS EXFOLIATIVE [None]
